FAERS Safety Report 5930545-4 (Version None)
Quarter: 2008Q4

REPORT INFORMATION
  Report Type: 
  Country: None (occurrence: None)
  Receive Date: 20081026
  Receipt Date: 20081023
  Transmission Date: 20090506
  Serious: Yes (Death, Hospitalization, Other)
  Sender: FDA-Public Use
  Company Number: PHHO2001ES01593

PATIENT
  Sex: Male

DRUGS (2)
  1. SIMULECT [Suspect]
     Indication: LIVER TRANSPLANT
     Dosage: 20 MG, DAY 0
     Route: 042
     Dates: start: 20000820, end: 20000820
  2. SIMULECT [Suspect]
     Dosage: 20 MG, DAY 4
     Route: 042
     Dates: start: 20000824, end: 20000824

REACTIONS (12)
  - ASCITES [None]
  - CRYOGLOBULINAEMIA [None]
  - GLOMERULONEPHRITIS [None]
  - HEPATIC CIRRHOSIS [None]
  - HEPATITIS C [None]
  - JAUNDICE [None]
  - OEDEMA [None]
  - PLEURAL EFFUSION [None]
  - PNEUMONIA [None]
  - PORTAL HYPERTENSION [None]
  - PULMONARY VASCULITIS [None]
  - RENAL IMPAIRMENT [None]
